FAERS Safety Report 13159880 (Version 7)
Quarter: 2019Q3

REPORT INFORMATION
  Report Type: Report from Study
  Country: None (occurrence: BR)
  Receive Date: 20170127
  Receipt Date: 20190903
  Transmission Date: 20191004
  Serious: Yes (Other)
  Sender: FDA-Public Use
  Company Number: BR-ABBVIE-15K-020-1472124-00

PATIENT
  Sex: Female
  Weight: 84 kg

DRUGS (9)
  1. ACECLOFENAC [Concomitant]
     Active Substance: ACECLOFENAC
     Indication: PAIN
     Dosage: AS NEEDED
     Route: 048
  2. VENLAFAXINE [Concomitant]
     Active Substance: VENLAFAXINE HYDROCHLORIDE
     Indication: PAIN
  3. DORENE [Concomitant]
     Active Substance: PREGABALIN
     Indication: PAIN
     Route: 048
  4. TRAMAL [Concomitant]
     Active Substance: TRAMADOL
     Indication: PAIN
     Dosage: 1 OR 2 TABLETS PER DAY
     Route: 048
     Dates: start: 2014
  5. HUMIRA [Suspect]
     Active Substance: ADALIMUMAB
     Indication: ANKYLOSING SPONDYLITIS
     Route: 058
     Dates: start: 20141023
  6. TORSILAX [Concomitant]
     Active Substance: ACETAMINOPHEN\CAFFEINE\CARISOPRODOL\DICLOFENAC
     Indication: PAIN
     Dosage: 1 OR 4 TABLETS PER DAY
     Route: 048
     Dates: start: 201412
  7. DIOSMIN SDU [Concomitant]
     Active Substance: DIOSMIN
     Indication: THROMBOSIS
     Route: 048
  8. ASPIRINA [Concomitant]
     Active Substance: ASPIRIN
     Indication: POOR PERIPHERAL CIRCULATION
  9. NORFLOXACIN [Concomitant]
     Active Substance: NORFLOXACIN
     Indication: PAIN
     Route: 048

REACTIONS (27)
  - Malaise [Unknown]
  - Blood glucose decreased [Unknown]
  - Inflammation [Recovered/Resolved]
  - Weight increased [Not Recovered/Not Resolved]
  - Plantar fasciitis [Recovering/Resolving]
  - Fibromyalgia [Unknown]
  - Syncope [Recovered/Resolved]
  - Musculoskeletal chest pain [Not Recovered/Not Resolved]
  - Confusional state [Unknown]
  - Renal pain [Not Recovered/Not Resolved]
  - Syncope [Unknown]
  - Costochondritis [Not Recovered/Not Resolved]
  - Plantar fasciitis [Recovered/Resolved]
  - Memory impairment [Not Recovered/Not Resolved]
  - Mental impairment [Not Recovered/Not Resolved]
  - Chest pain [Not Recovered/Not Resolved]
  - Pain in extremity [Not Recovered/Not Resolved]
  - Therapeutic product effect variable [Unknown]
  - Drug ineffective [Unknown]
  - Syncope [Recovered/Resolved]
  - Ankylosing spondylitis [Unknown]
  - Gait disturbance [Recovered/Resolved]
  - Syncope [Recovered/Resolved]
  - Somnolence [Not Recovered/Not Resolved]
  - Cardiovascular disorder [Recovered/Resolved]
  - Back pain [Not Recovered/Not Resolved]
  - Arthritis [Recovered/Resolved]

NARRATIVE: CASE EVENT DATE: 2015
